FAERS Safety Report 26105841 (Version 2)
Quarter: 2025Q4

REPORT INFORMATION
  Report Type: Spontaneous
  Country: JP (occurrence: JP)
  Receive Date: 20251201
  Receipt Date: 20251210
  Transmission Date: 20260118
  Serious: Yes (Hospitalization)
  Sender: STRIDES
  Company Number: JP-STRIDES ARCOLAB LIMITED-2025SP014694

PATIENT
  Age: 12 Year
  Sex: Male
  Weight: 20 kg

DRUGS (6)
  1. PHENOBARBITAL [Suspect]
     Active Substance: PHENOBARBITAL
     Indication: Infantile spasms
     Dosage: UNK
     Route: 065
  2. VALPROATE SODIUM [Concomitant]
     Active Substance: VALPROATE SODIUM
     Indication: Infantile spasms
     Dosage: UNK
     Route: 065
  3. LAMOTRIGINE [Concomitant]
     Active Substance: LAMOTRIGINE
     Indication: Infantile spasms
     Dosage: UNK
     Route: 065
  4. LEVETIRACETAM [Concomitant]
     Active Substance: LEVETIRACETAM
     Indication: Infantile spasms
     Dosage: UNK
     Route: 065
  5. Topiramate amel [Concomitant]
     Indication: Infantile spasms
     Route: 065
  6. CLONAZEPAM [Concomitant]
     Active Substance: CLONAZEPAM
     Indication: Infantile spasms
     Route: 065

REACTIONS (3)
  - Gingival hypertrophy [Unknown]
  - Sleep-related breathing disorder [Unknown]
  - Off label use [Unknown]
